FAERS Safety Report 10027601 (Version 2)
Quarter: 2014Q2

REPORT INFORMATION
  Report Type: Spontaneous
  Country: AU (occurrence: AU)
  Receive Date: 20140321
  Receipt Date: 20140414
  Transmission Date: 20141212
  Serious: Yes (Hospitalization)
  Sender: FDA-Public Use
  Company Number: AU-PFIZER INC-2014077997

PATIENT
  Age: 66 Year
  Sex: Male
  Weight: 99.6 kg

DRUGS (7)
  1. SUTENT [Suspect]
     Indication: RENAL CELL CARCINOMA
     Dosage: 50 MG, UNK
     Dates: start: 201210, end: 2012
  2. AMLODIPINE [Concomitant]
  3. METOPROLOL [Concomitant]
  4. HYDROCORTISONE [Concomitant]
  5. THYMINE [Concomitant]
  6. FLUDROCORTISONE [Concomitant]
  7. PANADOL [Concomitant]

REACTIONS (7)
  - Dehydration [Recovered/Resolved]
  - Fatigue [Recovered/Resolved]
  - Renal failure acute [Recovered/Resolved]
  - Nausea [Recovered/Resolved]
  - Diarrhoea [Recovered/Resolved]
  - Weight decreased [Unknown]
  - Hypophagia [Unknown]
